FAERS Safety Report 23359767 (Version 3)
Quarter: 2024Q3

REPORT INFORMATION
  Report Type: Report from Study
  Country: DE (occurrence: ZA)
  Receive Date: 20240103
  Receipt Date: 20240801
  Transmission Date: 20241017
  Serious: Yes (Other)
  Sender: JOHNSON AND JOHNSON
  Company Number: DE-OTSUKA-2023_030389

PATIENT
  Age: 29 Year
  Sex: Female

DRUGS (5)
  1. SIRTURO [Suspect]
     Active Substance: BEDAQUILINE FUMARATE
     Indication: Pulmonary tuberculosis
     Dosage: UNK
     Route: 065
     Dates: start: 20231023, end: 20231107
  2. SIRTURO [Suspect]
     Active Substance: BEDAQUILINE FUMARATE
     Dosage: UNK
     Route: 065
     Dates: start: 20231116, end: 20231117
  3. CETIRIZINE HYDROCHLORIDE [Suspect]
     Active Substance: CETIRIZINE HYDROCHLORIDE
     Indication: Product used for unknown indication
     Dosage: UNK
     Route: 065
     Dates: start: 20231031, end: 20231106
  4. DELAMANID [Suspect]
     Active Substance: DELAMANID
     Indication: Pulmonary tuberculosis
     Dosage: UNK
     Route: 048
     Dates: start: 20231116, end: 20231117
  5. DELAMANID [Suspect]
     Active Substance: DELAMANID
     Dosage: 300 MG, QD
     Route: 048
     Dates: start: 20231023, end: 20231107

REACTIONS (3)
  - Drug-induced liver injury [Recovered/Resolved]
  - Symmetrical drug-related intertriginous and flexural exanthema [Recovered/Resolved]
  - Diarrhoea [Recovered/Resolved]

NARRATIVE: CASE EVENT DATE: 20231027
